FAERS Safety Report 14017876 (Version 2)
Quarter: 2017Q4

REPORT INFORMATION
  Report Type: Spontaneous
  Country: AU (occurrence: AU)
  Receive Date: 20170928
  Receipt Date: 20171016
  Transmission Date: 20180321
  Serious: Yes (Hospitalization, Other)
  Sender: FDA-Public Use
  Company Number: AU-AMGEN-AUSSP2017144083

PATIENT
  Age: 87 Year
  Sex: Female

DRUGS (10)
  1. PARIET [Concomitant]
     Active Substance: RABEPRAZOLE SODIUM
  2. PANADOL [Concomitant]
     Active Substance: ACETAMINOPHEN
  3. PROLIA [Suspect]
     Active Substance: DENOSUMAB
     Indication: OSTEOPOROSIS
     Dosage: 60 MG, UNK
     Route: 065
  4. TEMAZE [Concomitant]
     Active Substance: TEMAZEPAM
  5. WARFARIN [Concomitant]
     Active Substance: WARFARIN
  6. CRESTOR [Concomitant]
     Active Substance: ROSUVASTATIN CALCIUM
  7. VITAMIN D [Concomitant]
     Active Substance: CHOLECALCIFEROL
  8. BETALOC [Concomitant]
     Active Substance: METOPROLOL TARTRATE
  9. DERMADRATE [Concomitant]
     Indication: SKIN DISORDER
  10. ATACAND [Concomitant]
     Active Substance: CANDESARTAN CILEXETIL

REACTIONS (4)
  - Hip fracture [Unknown]
  - Loss of personal independence in daily activities [Unknown]
  - Fall [Recovering/Resolving]
  - Femur fracture [Unknown]

NARRATIVE: CASE EVENT DATE: 2017
